FAERS Safety Report 10026956 (Version 1)
Quarter: 2014Q1

REPORT INFORMATION
  Report Type: Spontaneous
  Country: FR (occurrence: None)
  Receive Date: 20140319
  Receipt Date: 20140319
  Transmission Date: 20141002
  Serious: Yes (Hospitalization)
  Sender: FDA-Public Use
  Company Number: FK201400849

PATIENT
  Age: 76 Year
  Sex: Female

DRUGS (6)
  1. PIPERACILLIN/TAZOBACTAM [Suspect]
     Indication: ANTIBIOTIC THERAPY
     Dosage: 4GM, 3 IN 1 D, INTRAVENOUS (NOT OTHERWISE SPECIFIED)
     Route: 042
     Dates: start: 20130301, end: 20130314
  2. EUPANTOL [Suspect]
     Indication: PRODUCT USED FOR UNKNOWN INDICATION
     Dosage: 4 GM, 3 IN 1 D, INTRAVENOUS (NOT OTHERWISE SPECIFIED)
     Route: 042
     Dates: start: 20130209, end: 20130313
  3. BISOCE (BISOPROLOL) (BISOPROLOL) [Concomitant]
  4. ESIDREX (HYDROCHLOROTHIAZIDE) (HYDROCHLOROTHIAZIDE) [Concomitant]
  5. RASILEZ HCT (RASILEZ HCT) (RASILEZ HCT) [Concomitant]
  6. LOVENOX (ENOXAPARIN SODIUM) (ENOXAPARIN SODIUM) [Concomitant]

REACTIONS (1)
  - Drug reaction with eosinophilia and systemic symptoms [None]
